FAERS Safety Report 6123480-2 (Version None)
Quarter: 2009Q1

REPORT INFORMATION
  Report Type: 
  Country: None (occurrence: None)
  Receive Date: 20090318
  Receipt Date: 20090312
  Transmission Date: 20090719
  Serious: Yes (Other)
  Sender: FDA-Public Use
  Company Number: JP-B.I. PHARMACEUTICALS,INC./RIDGEFIELD-2009-BP-03229YA

PATIENT
  Age: 83 Year
  Sex: Male

DRUGS (9)
  1. TAMSULOSIN HCL [Suspect]
     Indication: BENIGN PROSTATIC HYPERPLASIA
     Route: 048
     Dates: start: 20081107
  2. SOLIFENACIN [Suspect]
     Indication: HYPERTONIC BLADDER
     Route: 048
     Dates: start: 20090116
  3. RIZE [Concomitant]
     Route: 048
  4. LANIRAPID [Concomitant]
     Route: 048
  5. WARFARIN SODIUM [Concomitant]
     Route: 048
  6. PRORENAL [Concomitant]
     Route: 048
  7. CYANOCOBALAMIN [Concomitant]
     Route: 048
  8. KARY UNI [Concomitant]
     Route: 031
  9. MAGLAX [Concomitant]
     Route: 048
     Dates: start: 20080516

REACTIONS (1)
  - PNEUMONIA [None]
